FAERS Safety Report 21916146 (Version 2)
Quarter: 2023Q1

REPORT INFORMATION
  Report Type: Spontaneous
  Country: HR (occurrence: HR)
  Receive Date: 20230126
  Receipt Date: 20230131
  Transmission Date: 20230417
  Serious: Yes (Other)
  Sender: FDA-Public Use
  Company Number: HR-002147023-NVSC2022HR289890

PATIENT
  Age: 87 Year
  Sex: Female

DRUGS (8)
  1. LETROZOLE [Suspect]
     Active Substance: LETROZOLE
     Indication: Hormone receptor positive HER2 negative breast cancer
     Dosage: 2.5 MILLIGRAM, QD,2.5 MG, QD (1X1)
     Route: 048
     Dates: start: 2022
  2. ZOLEDRONIC ACID [Suspect]
     Active Substance: ZOLEDRONIC ACID
     Indication: Breast cancer
     Dosage: 4 MILLIGRAM, MONTHLY,UNK, QMO (ONCE A MONTH)
     Route: 065
     Dates: start: 20220503
  3. KISQALI [Suspect]
     Active Substance: RIBOCICLIB
     Indication: Hormone receptor positive HER2 negative breast cancer
     Dosage: 1800 MILLIGRAM, QD,600 MG, TID (3X1)
     Route: 048
     Dates: start: 2022, end: 202209
  4. KISQALI [Suspect]
     Active Substance: RIBOCICLIB
     Dosage: 800 MILLIGRAM, QD,400 MG, BID (2X1)
     Route: 048
     Dates: start: 202209
  5. KISQALI [Suspect]
     Active Substance: RIBOCICLIB
     Dosage: 800 MILLIGRAM, QD,400 MG, BID (2X1)
     Route: 048
     Dates: start: 20220512, end: 2022
  6. KISQALI [Suspect]
     Active Substance: RIBOCICLIB
     Dosage: 400 MG (2X1) (FOR 21 DAYS, THEN 7 DAYS OFF
     Route: 048
     Dates: start: 202209
  7. KISQALI [Suspect]
     Active Substance: RIBOCICLIB
     Dosage: 400 MG (2X1) (OVER 21 DAYS, THEN 7 DAYS OFF)
     Route: 048
     Dates: start: 20220512, end: 2022
  8. KISQALI [Suspect]
     Active Substance: RIBOCICLIB
     Dosage: 600 MILLIGRAM (600 MG (3X1)
     Route: 048
     Dates: start: 2022, end: 202209

REACTIONS (5)
  - Neutropenia [Unknown]
  - COVID-19 [Recovered/Resolved]
  - Tumour marker increased [Unknown]
  - Fatigue [Unknown]
  - Transaminases increased [Unknown]
